FAERS Safety Report 6407710-5 (Version None)
Quarter: 2009Q4

REPORT INFORMATION
  Report Type: 
  Country: None (occurrence: None)
  Receive Date: 20091015
  Receipt Date: 20091008
  Transmission Date: 20100525
  Serious: Yes (Hospitalization, Other)
  Sender: FDA-Public Use
  Company Number: JP-1170186

PATIENT
  Age: 66 Year
  Sex: Female

DRUGS (13)
  1. BSS PLUS [Suspect]
     Dosage: 500 ML INTRAOCULAR
     Route: 031
     Dates: start: 20090702, end: 20090702
  2. OFLOXACIN [Suspect]
     Indication: INFECTION PROPHYLAXIS
     Dosage: 2 GTTS GIVEN FOR 1 DOSE-ONE TIME USE OPHTHALMIC
     Route: 047
     Dates: start: 20090702, end: 20090702
  3. LEVOFLOXACIN [Suspect]
     Indication: INFECTION PROPHYLAXIS
     Dosage: 2 GTTS GIVEN FOR 1 DOSE-ONE TIME USE OPHTHALMIC
     Route: 047
     Dates: start: 20090702, end: 20090702
  4. VEGAMOX (MOXIFLOXACIN HYDROCHLORIDE) [Concomitant]
  5. POLYVIDONE W/POLYVINYL ALCOHOL (TEARS PLUS) [Concomitant]
  6. MYDRIN-P (MYDRIN P) [Concomitant]
  7. NEOSYNESIN (PHENYLEPHRINE HYDROCHLORIDE) [Concomitant]
  8. CYCLOPENTOLATE HCL [Concomitant]
  9. BENOXIL (OXYBUPROCAINE) [Concomitant]
  10. HEALON (HYALURONATE SODIUM) [Concomitant]
  11. VISCOAT (VISCOAT) [Concomitant]
  12. LEVOFLOXACIN [Concomitant]
  13. TARIVID (OFLOXACIN) [Concomitant]

REACTIONS (4)
  - ANTERIOR CHAMBER CELL [None]
  - ANTERIOR CHAMBER FIBRIN [None]
  - UVEITIS [None]
  - VITREOUS OPACITIES [None]
